FAERS Safety Report 12739635 (Version 1)
Quarter: 2016Q3

REPORT INFORMATION
  Report Type: Spontaneous
  Country: BR (occurrence: BR)
  Receive Date: 20160913
  Receipt Date: 20160913
  Transmission Date: 20161109
  Serious: Yes (Other)
  Sender: FDA-Public Use
  Company Number: BR-SA-2016SA167267

PATIENT
  Sex: Female

DRUGS (2)
  1. LANTUS [Suspect]
     Active Substance: INSULIN GLARGINE
     Indication: MATERNAL EXPOSURE TIMING UNSPECIFIED
     Dosage: 25 IU PER DAY (13 IUS IN THE MORNING AND 12 IUS AT NIGHT)?REFILL
     Route: 064
  2. CLIKSTAR [Concomitant]
     Active Substance: CLIKSTAR
     Indication: MATERNAL EXPOSURE TIMING UNSPECIFIED
     Dosage: DOSE: INTRADERMAL  IN THE ARM OR ABDOMEN
     Route: 064
     Dates: end: 2016

REACTIONS (2)
  - Large for dates baby [Unknown]
  - Foetal exposure during pregnancy [Unknown]
